FAERS Safety Report 21579910 (Version 2)
Quarter: 2022Q4

REPORT INFORMATION
  Report Type: Spontaneous
  Country: US (occurrence: US)
  Receive Date: 20221110
  Receipt Date: 20221216
  Transmission Date: 20230113
  Serious: No
  Sender: FDA-Public Use
  Company Number: US-ALKERMES INC.-ALK-2022-005383

PATIENT
  Age: 41 Year
  Sex: Male

DRUGS (1)
  1. VIVITROL [Suspect]
     Active Substance: NALTREXONE
     Indication: Alcoholism
     Dosage: 380 MILLIGRAM, QMO
     Route: 030
     Dates: start: 20221006

REACTIONS (3)
  - Arthralgia [Unknown]
  - Injection site reaction [Unknown]
  - Injection site pain [Unknown]

NARRATIVE: CASE EVENT DATE: 20221001
